FAERS Safety Report 9721505 (Version 1)
Quarter: 2013Q4

REPORT INFORMATION
  Report Type: Spontaneous
  Country: US (occurrence: US)
  Receive Date: 20131130
  Receipt Date: 20131130
  Transmission Date: 20140711
  Serious: No
  Sender: FDA-Public Use
  Company Number: US-009507513-1311USA013173

PATIENT
  Age: 36 Year
  Sex: Female

DRUGS (1)
  1. SINGULAIR [Suspect]
     Dosage: UNK
     Dates: start: 201309, end: 201310

REACTIONS (1)
  - Pruritus [Recovered/Resolved]
